FAERS Safety Report 23395328 (Version 4)
Quarter: 2024Q2

REPORT INFORMATION
  Report Type: Spontaneous
  Country: US (occurrence: US)
  Receive Date: 20240112
  Receipt Date: 20240501
  Transmission Date: 20240715
  Serious: No
  Sender: FDA-Public Use
  Company Number: US-Calliditas-2024CAL00001

PATIENT
  Age: 58 Year
  Sex: Male

DRUGS (1)
  1. TARPEYO [Suspect]
     Active Substance: BUDESONIDE
     Indication: Haematuria
     Dosage: 16 MG (4 MG CAPSULES) ONCE DAILY
     Route: 048
     Dates: start: 20230823, end: 20240423

REACTIONS (6)
  - Blood pressure increased [Unknown]
  - Product dose omission issue [Unknown]
  - Product supply issue [Recovered/Resolved]
  - Muscular weakness [Unknown]
  - Peripheral swelling [Recovering/Resolving]
  - Pain [Recovered/Resolved]
